FAERS Safety Report 5114224-1 (Version None)
Quarter: 2006Q3

REPORT INFORMATION
  Report Type: 
  Country: None (occurrence: None)
  Receive Date: 20060925
  Receipt Date: 20060919
  Transmission Date: 20061208
  Serious: Yes (Hospitalization)
  Sender: FDA-Public Use
  Company Number: NL-SANOFI-SYNTHELABO-F01200602004

PATIENT
  Sex: Female

DRUGS (4)
  1. DURAGESIC-100 [Concomitant]
     Route: 065
  2. AVASTIN [Suspect]
     Dosage: 600 MG
     Route: 041
     Dates: start: 20060524, end: 20060524
  3. CAPECITABINE [Suspect]
     Dosage: 1300 MG
     Route: 048
     Dates: start: 20060830, end: 20060830
  4. OXALIPLATIN [Suspect]
     Indication: COLORECTAL CANCER
     Dosage: 200 MG
     Route: 041
     Dates: start: 20060830, end: 20060830

REACTIONS (3)
  - GINGIVITIS [None]
  - PYREXIA [None]
  - TOOTHACHE [None]
